FAERS Safety Report 17465346 (Version 2)
Quarter: 2020Q1

REPORT INFORMATION
  Report Type: Spontaneous
  Country: US (occurrence: US)
  Receive Date: 20200227
  Receipt Date: 20200227
  Transmission Date: 20200409
  Serious: No
  Sender: FDA-Public Use
  Company Number: US-JNJFOC-20200205609

PATIENT
  Sex: Female
  Weight: 56.75 kg

DRUGS (1)
  1. WOMENS ROGAINE UNSCENTED [Suspect]
     Active Substance: MINOXIDIL
     Indication: ALOPECIA
     Dosage: HALF CUPFUL
     Route: 061

REACTIONS (3)
  - Application site paraesthesia [Recovered/Resolved]
  - Application site irritation [Not Recovered/Not Resolved]
  - Therapeutic product effect incomplete [Unknown]
